FAERS Safety Report 10674344 (Version 1)
Quarter: 2014Q4

REPORT INFORMATION
  Report Type: Spontaneous
  Country: US (occurrence: US)
  Receive Date: 20141224
  Receipt Date: 20141224
  Transmission Date: 20150529
  Serious: No
  Sender: FDA-Public Use
  Company Number: US-PFIZER INC-2014349648

PATIENT
  Age: 9 Year
  Sex: Male
  Weight: 5 kg

DRUGS (1)
  1. R-GENE [Suspect]
     Active Substance: ARGININE HYDROCHLORIDE
     Dosage: UNK
     Route: 042

REACTIONS (1)
  - Extravasation [Unknown]

NARRATIVE: CASE EVENT DATE: 20141216
